FAERS Safety Report 20068332 (Version 1)
Quarter: 2021Q4

REPORT INFORMATION
  Report Type: Other
  Country: FR (occurrence: FR)
  Receive Date: 20211115
  Receipt Date: 20211115
  Transmission Date: 20220303
  Serious: Yes (Hospitalization)
  Sender: FDA-Public Use
  Company Number: FR-CELLTRION HEALTHCARE HUNGARY KFT-2021FR014602

PATIENT
  Age: 29 Year
  Sex: Male

DRUGS (3)
  1. RITUXIMAB [Suspect]
     Active Substance: RITUXIMAB
     Indication: Epstein Barr virus positive mucocutaneous ulcer
     Dosage: FOUR CYCLES OF WEEKLY RITUXIMAB (375 MG/M2) AND FOUR MAINTENANCE CURES (1/3 WEEKS)
     Route: 041
  2. MYCOPHENOLATE MOFETIL [Suspect]
     Active Substance: MYCOPHENOLATE MOFETIL
     Indication: Prophylaxis against transplant rejection
     Route: 065
  3. BASILIXIMAB [Suspect]
     Active Substance: BASILIXIMAB
     Indication: Prophylaxis against transplant rejection
     Dosage: INDUCTION THERAPY
     Route: 065

REACTIONS (2)
  - Epstein Barr virus positive mucocutaneous ulcer [Unknown]
  - Off label use [Unknown]
